FAERS Safety Report 19141597 (Version 1)
Quarter: 2021Q2

REPORT INFORMATION
  Report Type: Spontaneous
  Country: US (occurrence: US)
  Receive Date: 20210415
  Receipt Date: 20210415
  Transmission Date: 20210717
  Serious: Yes (Other)
  Sender: FDA-Public Use
  Company Number: US-BAUSCH-BL-2021-011490

PATIENT
  Age: 17 Year
  Sex: Female

DRUGS (1)
  1. MINOCYCLINE HYDROCHLORIDE. [Suspect]
     Active Substance: MINOCYCLINE HYDROCHLORIDE
     Indication: ACNE
     Route: 065

REACTIONS (7)
  - Hepatic necrosis [Recovered/Resolved]
  - Hepatorenal syndrome [Recovered/Resolved]
  - Acute hepatic failure [Recovered/Resolved]
  - Coma [Recovered/Resolved]
  - Drug-induced liver injury [Recovered/Resolved]
  - Pancreatitis haemorrhagic [Recovered/Resolved]
  - Pancreatitis necrotising [Recovered/Resolved]
